FAERS Safety Report 7930933-0 (Version None)
Quarter: 2011Q4

REPORT INFORMATION
  Report Type: 
  Country: None (occurrence: None)
  Receive Date: 20111121
  Receipt Date: 20111107
  Transmission Date: 20120403
  Serious: Yes (Hospitalization)
  Sender: FDA-Public Use
  Company Number: FI-B.I. PHARMACEUTICALS,INC./RIDGEFIELD-2011-RD-00204DE

PATIENT
  Sex: Male
  Weight: 92 kg

DRUGS (5)
  1. BI 1356 [Suspect]
     Indication: TYPE 2 DIABETES MELLITUS
     Dosage: 5 MG
     Route: 048
     Dates: start: 20110804
  2. TELMISARTAN [Concomitant]
     Indication: HYPERTENSION
     Dates: start: 20080101
  3. APOLAR [Concomitant]
     Indication: PSORIASIS
     Dates: start: 20110921
  4. BEMETSON CREM [Concomitant]
     Indication: PSORIASIS
     Dates: start: 20100101
  5. DIPROSALIC [Concomitant]
     Indication: PSORIASIS
     Dates: start: 20110921

REACTIONS (1)
  - PSORIASIS [None]
